FAERS Safety Report 9839302 (Version 2)
Quarter: 2014Q1

REPORT INFORMATION
  Report Type: Report from Study
  Country: BR (occurrence: BR)
  Receive Date: 20140123
  Receipt Date: 20140221
  Transmission Date: 20141002
  Serious: Yes (Death, Other)
  Sender: FDA-Public Use
  Company Number: PHHY2014BR007254

PATIENT
  Age: 85 Year
  Sex: Female
  Weight: 57 kg

DRUGS (4)
  1. DIOVAN [Suspect]
     Indication: HYPERTENSION
     Dosage: 1 DF (160MG), QD (ONCE IN THE MORNING)
     Route: 048
     Dates: start: 2010, end: 20140112
  2. MELHORAL INFANTIL [Suspect]
     Indication: MIGRAINE PROPHYLAXIS
  3. NATRILIX [Concomitant]
     Dosage: 1 DF, (1.5 MG) DAILY
     Route: 048
     Dates: start: 2011, end: 20140112
  4. PURAN T4 [Concomitant]
     Indication: THYROID DISORDER
     Dosage: 1 DF (25UG), DAILY
     Route: 048
     Dates: start: 2011, end: 20140112

REACTIONS (14)
  - Bronchopneumonia [Fatal]
  - Limb injury [Unknown]
  - Femur fracture [Not Recovered/Not Resolved]
  - Sensation of heaviness [Unknown]
  - Ligament sprain [Not Recovered/Not Resolved]
  - Spinal pain [Not Recovered/Not Resolved]
  - Dysphagia [Not Recovered/Not Resolved]
  - Agitation [Recovered/Resolved]
  - Exostosis [Unknown]
  - Hypokinesia [Unknown]
  - Anxiety [Recovered/Resolved]
  - Pyrexia [Unknown]
  - Dizziness [Not Recovered/Not Resolved]
  - Oedema peripheral [Unknown]
